FAERS Safety Report 11793766 (Version 1)
Quarter: 2015Q4

REPORT INFORMATION
  Report Type: Spontaneous
  Country: US (occurrence: None)
  Receive Date: 20151201
  Receipt Date: 20151201
  Transmission Date: 20160305
  Serious: Yes (Disabling)
  Sender: FDA-Public Use
  Company Number: None

PATIENT
  Age: 37 Year
  Sex: Male
  Weight: 81.65 kg

DRUGS (4)
  1. CORTESONE SHOT [Concomitant]
  2. LEVAQUIN [Concomitant]
     Active Substance: LEVOFLOXACIN
  3. DULERA [Suspect]
     Active Substance: FORMOTEROL FUMARATE DIHYDRATE\MOMETASONE FUROATE
     Indication: ATYPICAL PNEUMONIA
     Route: 048
     Dates: start: 20151129, end: 20151129
  4. MUSINEX [Concomitant]

REACTIONS (3)
  - Heart rate increased [None]
  - Drug ineffective [None]
  - Migraine [None]

NARRATIVE: CASE EVENT DATE: 20151129
